FAERS Safety Report 6030167-3 (Version None)
Quarter: 2009Q1

REPORT INFORMATION
  Report Type: 
  Country: None (occurrence: None)
  Receive Date: 20090107
  Receipt Date: 20081230
  Transmission Date: 20090719
  Serious: Yes (Other)
  Sender: FDA-Public Use
  Company Number: CN-PFIZER INC-2008161067

PATIENT

DRUGS (1)
  1. METHYLPREDNISOLONE AND METHYLPREDNISOLONE ACETATE AND METHYLPREDNISOLO [Suspect]
     Indication: RENAL TRANSPLANT
     Route: 042

REACTIONS (6)
  - ABNORMAL BEHAVIOUR [None]
  - DELIRIUM [None]
  - DELUSIONAL DISORDER, PERSECUTORY TYPE [None]
  - DYSPHORIA [None]
  - HALLUCINATION, AUDITORY [None]
  - HALLUCINATION, VISUAL [None]
